FAERS Safety Report 4727116-4 (Version None)
Quarter: 2005Q3

REPORT INFORMATION
  Report Type: 
  Country: None (occurrence: None)
  Receive Date: 20050726
  Receipt Date: 20050713
  Transmission Date: 20060218
  Serious: Yes (Other)
  Sender: FDA-Public Use
  Company Number: 2005080140

PATIENT
  Sex: Female

DRUGS (1)
  1. CELEBREX [Suspect]
     Indication: ILL-DEFINED DISORDER

REACTIONS (8)
  - DRUG INEFFECTIVE [None]
  - FIBROMYALGIA [None]
  - FRACTURE [None]
  - MALAISE [None]
  - OSTEOPOROSIS [None]
  - SURGERY [None]
  - SYSTEMIC LUPUS ERYTHEMATOSUS [None]
  - VOMITING [None]
